FAERS Safety Report 4286403-7 (Version None)
Quarter: 2004Q1

REPORT INFORMATION
  Report Type: 
  Country: None (occurrence: None)
  Receive Date: 20040126
  Receipt Date: 20021223
  Transmission Date: 20041129
  Serious: No
  Sender: FDA-Public Use
  Company Number: 02P-163-0203781-00

PATIENT
  Age: 50 Year
  Sex: Male

DRUGS (3)
  1. TERAZOSIN HYDROCHLORIDE [Suspect]
     Dosage: 1 MG, 1 IN 1 D, PER ORAL
     Route: 048
     Dates: start: 20021001, end: 20021003
  2. VARDENAFIL [Suspect]
     Dosage: 20 MG, 1 IN 1 D, PER ORAL
     Route: 048
     Dates: start: 20021015, end: 20021015
  3. PLACEBO [Suspect]

REACTIONS (4)
  - DIZZINESS [None]
  - HEADACHE [None]
  - HYPOTENSION [None]
  - SOMNOLENCE [None]
